FAERS Safety Report 24609210 (Version 1)
Quarter: 2024Q4

REPORT INFORMATION
  Report Type: Spontaneous
  Country: US (occurrence: US)
  Receive Date: 20241112
  Receipt Date: 20241112
  Transmission Date: 20250115
  Serious: No
  Sender: Harrow Health
  Company Number: US-IMP-2024000953

PATIENT
  Age: 77 Year
  Sex: Female

DRUGS (2)
  1. VEVYE [Suspect]
     Active Substance: CYCLOSPORINE
     Indication: Dry eye
     Dosage: ONE DROP EACH EYE TWICE A DAY
     Route: 047
     Dates: start: 20241101, end: 20241104
  2. Retaine Ocusoft vials [Concomitant]
     Indication: Product used for unknown indication

REACTIONS (3)
  - Eye irritation [Unknown]
  - Drug ineffective [Unknown]
  - Product delivery mechanism issue [Unknown]
